FAERS Safety Report 4653796-8 (Version None)
Quarter: 2005Q2

REPORT INFORMATION
  Report Type: 
  Country: None (occurrence: None)
  Receive Date: 20050504
  Receipt Date: 20050406
  Transmission Date: 20051028
  Serious: Yes (Other)
  Sender: FDA-Public Use
  Company Number: 2004106538

PATIENT
  Sex: Female

DRUGS (8)
  1. PROVERA [Suspect]
     Indication: HORMONE REPLACEMENT THERAPY
     Dosage: ORAL
     Route: 048
     Dates: start: 20051023
  2. CONJUGATED ESTROGENS [Suspect]
     Indication: HORMONE REPLACEMENT THERAPY
     Dosage: ORAL
     Route: 048
     Dates: start: 19880302, end: 19970301
  3. PROVELLA-14 (ESTROGENS CONJUGATED, MEDROXYPROGESTERONE ACETATE) [Suspect]
     Indication: HORMONE REPLACEMENT THERAPY
     Dosage: ORAL
     Route: 048
     Dates: start: 19970314, end: 19991209
  4. ESTROGEN NOS (ESTROGEN NOS) [Suspect]
     Indication: HORMONE REPLACEMENT THERAPY
     Dates: start: 19880323, end: 19881211
  5. ESTRADIOL [Suspect]
     Indication: HORMONE REPLACEMENT THERAPY
     Dates: start: 19880914
  6. NIFEDIPINE [Concomitant]
  7. HYDROCHLOROTHIAZIDE [Concomitant]
  8. HYDROCODONE BITARTRATE [Concomitant]

REACTIONS (12)
  - ANEURYSM [None]
  - ARTHRITIS [None]
  - BREAST CANCER FEMALE [None]
  - CARDIAC DISORDER [None]
  - GALLBLADDER DISORDER [None]
  - HYPERTENSION [None]
  - IRRITABLE BOWEL SYNDROME [None]
  - MENOPAUSE [None]
  - METRORRHAGIA [None]
  - PAIN [None]
  - SKIN CANCER [None]
  - TUBAL LIGATION [None]
